FAERS Safety Report 12972240 (Version 1)
Quarter: 2016Q4

REPORT INFORMATION
  Report Type: Other
  Country: CA (occurrence: CA)
  Receive Date: 20161124
  Receipt Date: 20161124
  Transmission Date: 20170207
  Serious: Yes (Disabling)
  Sender: FDA-Public Use
  Company Number: CA-APOTEX-2016AP014650

PATIENT
  Age: 6 Month
  Sex: Female
  Weight: 3 kg

DRUGS (4)
  1. SERTRALINE [Suspect]
     Active Substance: SERTRALINE HYDROCHLORIDE
     Indication: PRODUCT USED FOR UNKNOWN INDICATION
     Dosage: 100 MG, QD
     Route: 063
  2. ZOLOFT [Suspect]
     Active Substance: SERTRALINE HYDROCHLORIDE
     Indication: PRODUCT USED FOR UNKNOWN INDICATION
     Dosage: 100 MG, QD
     Route: 063
  3. MULTIVITAMINS WITH MINERALS        /02319901/ [Concomitant]
     Indication: PRODUCT USED FOR UNKNOWN INDICATION
     Route: 065
  4. APO-SERTRALINE [Suspect]
     Active Substance: SERTRALINE HYDROCHLORIDE
     Indication: PRODUCT USED FOR UNKNOWN INDICATION
     Dosage: 100 MG, QD
     Route: 063

REACTIONS (8)
  - Neonatal disorder [Recovering/Resolving]
  - Exposure during breast feeding [Recovering/Resolving]
  - Selective eating disorder [Recovering/Resolving]
  - Abnormal behaviour [Recovering/Resolving]
  - Poor weight gain neonatal [Recovering/Resolving]
  - Sleep disorder [Recovering/Resolving]
  - Infantile colic [Recovering/Resolving]
  - Developmental delay [Recovering/Resolving]
